FAERS Safety Report 18286046 (Version 2)
Quarter: 2021Q3

REPORT INFORMATION
  Report Type: Spontaneous
  Country: US (occurrence: US)
  Receive Date: 20200919
  Receipt Date: 20210903
  Transmission Date: 20211014
  Serious: Yes (Death, Hospitalization, Disabling, Other)
  Sender: FDA-Public Use
  Company Number: US-SA-2020SA252950

PATIENT

DRUGS (1)
  1. ZANTAC [Suspect]
     Active Substance: RANITIDINE HYDROCHLORIDE
     Dosage: UNK
     Dates: start: 199201, end: 200501

REACTIONS (8)
  - Deformity [Unknown]
  - Neoplasm malignant [Fatal]
  - Hospitalisation [Unknown]
  - Anhedonia [Unknown]
  - Disability [Unknown]
  - Oesophageal carcinoma [Fatal]
  - Anxiety [Unknown]
  - Pain [Unknown]

NARRATIVE: CASE EVENT DATE: 20150101
